FAERS Safety Report 9433201 (Version 1)
Quarter: 2013Q3

REPORT INFORMATION
  Report Type: Report from Study
  Country: AU (occurrence: AU)
  Receive Date: 20130731
  Receipt Date: 20130731
  Transmission Date: 20140515
  Serious: Yes (Hospitalization)
  Sender: FDA-Public Use
  Company Number: PHHY2013AU077915

PATIENT
  Age: 53 Year
  Sex: Male

DRUGS (5)
  1. CLOZARIL [Suspect]
     Indication: SCHIZOPHRENIA
     Dosage: 650 MG
     Route: 048
     Dates: start: 19931124
  2. VALPROIC ACID [Suspect]
     Indication: AFFECTIVE DISORDER
     Dosage: 1000 MG, BID
  3. MEDROXYPROGESTERONE [Suspect]
     Indication: HYPERSEXUALITY
     Dosage: UNK
  4. MEDROXYPROGESTERONE [Suspect]
     Indication: AGGRESSION
  5. METFORMIN [Suspect]
     Indication: DIABETES MELLITUS
     Dosage: 1 G, TID
     Route: 048

REACTIONS (3)
  - Aggression [Recovering/Resolving]
  - Antipsychotic drug level decreased [Unknown]
  - Agitation [Recovering/Resolving]
